FAERS Safety Report 5650953-9 (Version None)
Quarter: 2008Q1

REPORT INFORMATION
  Report Type: 
  Country: None (occurrence: None)
  Receive Date: 20080131
  Receipt Date: 20071210
  Transmission Date: 20080703
  Serious: No
  Sender: FDA-Public Use
  Company Number: US200712002158

PATIENT
  Age: 71 Year
  Sex: Male
  Weight: 93 kg

DRUGS (5)
  1. BYETTA [Suspect]
     Indication: INSULIN-REQUIRING TYPE 2 DIABETES MELLITUS
     Dosage: 5 UG, 2/D, SUBCUTANEOUS
     Route: 058
     Dates: start: 20071101
  2. GLIPIZIDE [Concomitant]
  3. VIAGRA [Concomitant]
  4. HUMALOG [Concomitant]
  5. POLYETHYLENE GLYCOL (MACROGOL) [Concomitant]

REACTIONS (9)
  - BLOOD GLUCOSE DECREASED [None]
  - BLOOD GLUCOSE INCREASED [None]
  - CONSTIPATION [None]
  - DECREASED APPETITE [None]
  - DYSPEPSIA [None]
  - FEELING ABNORMAL [None]
  - LIBIDO DECREASED [None]
  - NAUSEA [None]
  - TREMOR [None]
